FAERS Safety Report 8432939-4 (Version None)
Quarter: 2012Q2

REPORT INFORMATION
  Report Type: 
  Country: None (occurrence: None)
  Receive Date: 20120323
  Receipt Date: 20110808
  Transmission Date: 20120825
  Serious: Yes (Other)
  Sender: FDA-Public Use
  Company Number: 163-21880-11071761

PATIENT
  Age: 44 Year
  Sex: Male
  Weight: 77.1115 kg

DRUGS (3)
  1. REVLIMID [Suspect]
     Indication: LYMPHOMA
     Dosage: 25 MG, 1 IN 1 D, PO ; 20 MG, QD X21D, PO
     Route: 048
     Dates: start: 20100623
  2. REVLIMID [Suspect]
     Indication: LYMPHOMA
     Dosage: 25 MG, 1 IN 1 D, PO ; 20 MG, QD X21D, PO
     Route: 048
     Dates: start: 20101101, end: 20110801
  3. REVLIMID [Suspect]

REACTIONS (3)
  - CONDITION AGGRAVATED [None]
  - LYMPHOMA [None]
  - FULL BLOOD COUNT DECREASED [None]
